FAERS Safety Report 6604134-2 (Version None)
Quarter: 2010Q1

REPORT INFORMATION
  Report Type: 
  Country: None (occurrence: None)
  Receive Date: 20100226
  Receipt Date: 20090529
  Transmission Date: 20100710
  Serious: No
  Sender: FDA-Public Use
  Company Number: A0788686A

PATIENT

DRUGS (1)
  1. LAMICTAL CD [Suspect]
     Indication: PARTIAL SEIZURES
     Dosage: 200MG PER DAY
     Route: 048
     Dates: start: 20080101

REACTIONS (2)
  - TOOTH DISORDER [None]
  - TOOTH INFECTION [None]
